FAERS Safety Report 13509129 (Version 1)
Quarter: 2017Q2

REPORT INFORMATION
  Report Type: Spontaneous
  Country: US (occurrence: US)
  Receive Date: 20170503
  Receipt Date: 20170503
  Transmission Date: 20170830
  Serious: No
  Sender: FDA-Public Use
  Company Number: US-009507513-1704USA005006

PATIENT
  Age: 26 Year
  Sex: Female
  Weight: 68.03 kg

DRUGS (1)
  1. NEXPLANON [Suspect]
     Active Substance: ETONOGESTREL
     Indication: CONTRACEPTION
     Dosage: 1 DF, 3 YEARS, LEFT ARM
     Route: 059
     Dates: start: 20160620

REACTIONS (8)
  - Metrorrhagia [Unknown]
  - Fatigue [Unknown]
  - Dyspnoea [Unknown]
  - Migration of implanted drug [Unknown]
  - Chest pain [Unknown]
  - Hypoaesthesia [Unknown]
  - Headache [Unknown]
  - Mood altered [Unknown]

NARRATIVE: CASE EVENT DATE: 201606
